FAERS Safety Report 8463148-0 (Version None)
Quarter: 2012Q2

REPORT INFORMATION
  Report Type: 
  Country: None (occurrence: None)
  Receive Date: 20120625
  Receipt Date: 20120615
  Transmission Date: 20120825
  Serious: Yes (Hospitalization)
  Sender: FDA-Public Use
  Company Number: US-EISAI INC-E7389-02588-CLI-US

PATIENT
  Sex: Female
  Weight: 64 kg

DRUGS (16)
  1. GARLIC [Concomitant]
     Route: 048
  2. MULTI-VITAMINS [Concomitant]
     Route: 048
  3. MECLIZINE HYDROCHLORIDE [Concomitant]
     Route: 048
  4. CAPECITABINE [Concomitant]
     Indication: BREAST CANCER
     Route: 048
     Dates: start: 20120426, end: 20120606
  5. CALCITRATE + VIT D3 [Concomitant]
     Route: 048
  6. MAGNESIUM OXIDE [Concomitant]
     Route: 048
  7. PROCHLORPERAZINE MALEATE [Concomitant]
     Route: 048
  8. FENOFIBRATE [Concomitant]
     Route: 048
  9. ZOFRAN [Concomitant]
     Route: 061
  10. GLUCOSAMINE [Concomitant]
     Dosage: 700-600-30
     Route: 048
  11. LOMOTIL [Concomitant]
     Indication: DIARRHOEA
     Dosage: 2.5 / 0.25MG
     Route: 048
  12. TRIPLE MIX (EQUAL PARTS MAALOX / LIDOCAINE / BENEDRYL) [Concomitant]
     Route: 048
  13. EPIRUBICIN HYDROCHLORIDE [Suspect]
     Indication: BREAST CANCER
     Route: 041
     Dates: start: 20120426, end: 20120531
  14. PROCHLORPERAZINE MALEATE [Concomitant]
     Indication: NAUSEA
     Route: 048
  15. ULTRAM [Concomitant]
     Route: 048
  16. VITAMIN D [Concomitant]
     Route: 061

REACTIONS (2)
  - MUSCULAR WEAKNESS [None]
  - PLEURITIC PAIN [None]
